FAERS Safety Report 7883836-4 (Version None)
Quarter: 2011Q4

REPORT INFORMATION
  Report Type: 
  Country: None (occurrence: None)
  Receive Date: 20111102
  Receipt Date: 20111020
  Transmission Date: 20120403
  Serious: Yes (Other)
  Sender: FDA-Public Use
  Company Number: GB-ELI_LILLY_AND_COMPANY-GB201103002894

PATIENT
  Age: 15 Year
  Sex: Male
  Weight: 76 kg

DRUGS (1)
  1. STRATTERA [Suspect]
     Dosage: 80 MG, DAILY (1/D)
     Dates: end: 20110202

REACTIONS (2)
  - STERNAL FRACTURE [None]
  - BLOOD GLUCOSE INCREASED [None]
